FAERS Safety Report 8841323 (Version 1)
Quarter: 2012Q4

REPORT INFORMATION
  Report Type: 
  Country: US (occurrence: US)
  Receive Date: 20121015
  Receipt Date: 20121015
  Transmission Date: 20130627
  Serious: Yes (Hospitalization)
  Sender: FDA-Public Use
  Company Number: US-B.I. PHARMACEUTICALS,INC./RIDGEFIELD-2012-BP-24968BP

PATIENT
  Sex: Male
  Weight: 90 kg

DRUGS (4)
  1. PRADAXA [Suspect]
     Indication: ATRIAL FIBRILLATION
     Dosage: 300 mg
     Route: 048
     Dates: start: 201104, end: 20120925
  2. PRAVASTATIN [Concomitant]
     Indication: BLOOD CHOLESTEROL INCREASED
     Dosage: 80 mg
     Route: 048
     Dates: start: 2011
  3. LEXAPRO [Concomitant]
     Indication: DEPRESSION
     Dosage: 10 mg
     Route: 048
     Dates: start: 2011
  4. LEXAPRO [Concomitant]
     Indication: ANXIETY

REACTIONS (13)
  - Atrial fibrillation [Recovered/Resolved]
  - Anxiety [Not Recovered/Not Resolved]
  - Restlessness [Not Recovered/Not Resolved]
  - Gait disturbance [Not Recovered/Not Resolved]
  - Sluggishness [Not Recovered/Not Resolved]
  - Asthenia [Not Recovered/Not Resolved]
  - Gait disturbance [Not Recovered/Not Resolved]
  - Dyspnoea [Recovered/Resolved]
  - Cold sweat [Recovered/Resolved]
  - Fatigue [Not Recovered/Not Resolved]
  - Fall [Recovered/Resolved]
  - Visual impairment [Recovered/Resolved]
  - Dyspepsia [Recovered/Resolved]
